FAERS Safety Report 15744800 (Version 9)
Quarter: 2020Q1

REPORT INFORMATION
  Report Type: Report from Study
  Country: JP (occurrence: JP)
  Receive Date: 20181220
  Receipt Date: 20200228
  Transmission Date: 20200409
  Serious: Yes (Life-Threatening, Hospitalization, Other)
  Sender: FDA-Public Use
  Company Number: JP-ACTELION-A-CH2018-183791

PATIENT
  Age: 4 Month
  Sex: Male
  Weight: 5.38 kg

DRUGS (41)
  1. FUROSEMIDE. [Concomitant]
     Active Substance: FUROSEMIDE
     Dosage: UNK
     Dates: start: 20180707, end: 20180805
  2. ALDACTONE A [Concomitant]
     Active Substance: SPIRONOLACTONE
     Indication: CARDIAC FAILURE
     Dosage: 15 MG, QD
     Dates: start: 20180701, end: 20180802
  3. ALDACTONE A [Concomitant]
     Active Substance: SPIRONOLACTONE
     Dosage: 22 MG, QD
     Dates: start: 20180802, end: 20181004
  4. HYDROCHLOROTHIAZIDE. [Concomitant]
     Active Substance: HYDROCHLOROTHIAZIDE
     Indication: CARDIAC FAILURE
     Dosage: UNK
     Dates: start: 20180801, end: 20181115
  5. EPOPROSTENOL ACT [Suspect]
     Active Substance: EPOPROSTENOL
     Dosage: 44 NG/KG, PER MIN
     Route: 042
     Dates: start: 20180629, end: 20180927
  6. UPTRAVI [Suspect]
     Active Substance: SELEXIPAG
     Dosage: 0.14 MG, BID
     Route: 048
     Dates: start: 20180721, end: 20180725
  7. REVATIO [Suspect]
     Active Substance: SILDENAFIL CITRATE
     Indication: PULMONARY ARTERIAL HYPERTENSION
     Dosage: 0.45-3.6 MG, QD
     Route: 048
     Dates: start: 20180524, end: 20180813
  8. REVATIO [Suspect]
     Active Substance: SILDENAFIL CITRATE
     Dosage: 21.6 MG, QD
     Route: 048
     Dates: end: 20180808
  9. ADCIRCA [Concomitant]
     Active Substance: TADALAFIL
     Dosage: 5 MG, QD
     Dates: start: 20180806, end: 20180810
  10. FUROSEMIDE. [Concomitant]
     Active Substance: FUROSEMIDE
     Dosage: 18 MG, QD
     Dates: start: 20181019, end: 20181216
  11. FUROSEMIDE. [Concomitant]
     Active Substance: FUROSEMIDE
     Dosage: UNK
     Dates: start: 20180604, end: 20180805
  12. WARFARIN [Concomitant]
     Active Substance: WARFARIN
     Indication: THROMBOSIS PROPHYLAXIS
     Dosage: UNK
     Dates: start: 20180614
  13. OPSUMIT [Suspect]
     Active Substance: MACITENTAN
     Indication: PULMONARY HYPERTENSION
     Dosage: 0.5 MG, BID
     Route: 048
     Dates: start: 20180523
  14. OPSUMIT [Suspect]
     Active Substance: MACITENTAN
     Dosage: 0.7 MG, BID
     Route: 048
     Dates: start: 20190409
  15. EPOPROSTENOL ACT [Suspect]
     Active Substance: EPOPROSTENOL
     Dosage: UNK
     Route: 042
     Dates: start: 20180524, end: 20180604
  16. UPTRAVI [Suspect]
     Active Substance: SELEXIPAG
     Dosage: 0.08 MG, BID
     Route: 048
     Dates: start: 20180706, end: 20180710
  17. FUROSEMIDE. [Concomitant]
     Active Substance: FUROSEMIDE
     Dosage: 22 MG, QD
     Dates: start: 20180802, end: 20181004
  18. FUROSEMIDE. [Concomitant]
     Active Substance: FUROSEMIDE
     Dosage: 21 MG, QD
     Dates: start: 20181005, end: 20181018
  19. EPOPROSTENOL ACT [Suspect]
     Active Substance: EPOPROSTENOL
     Dosage: 50 NG/KG, PER MIN
     Route: 042
     Dates: start: 20180604, end: 20180626
  20. UPTRAVI [Suspect]
     Active Substance: SELEXIPAG
     Dosage: 0.04 MG, BID
     Route: 048
     Dates: start: 20180626, end: 20180630
  21. UPTRAVI [Suspect]
     Active Substance: SELEXIPAG
     Dosage: 0.16 MG, BID
     Route: 048
     Dates: start: 20180726, end: 20180913
  22. UPTRAVI [Suspect]
     Active Substance: SELEXIPAG
     Dosage: 0.18 MG, BID
     Route: 048
     Dates: start: 20180914, end: 20180918
  23. ADCIRCA [Concomitant]
     Active Substance: TADALAFIL
     Indication: PULMONARY HYPERTENSION
     Dosage: 8 MG, QD
     Dates: start: 20180810
  24. UPTRAVI [Suspect]
     Active Substance: SELEXIPAG
     Indication: PULMONARY HYPERTENSION
     Dosage: 0.02 MG, BID
     Route: 048
     Dates: start: 20180621, end: 20180625
  25. SAMSCA [Concomitant]
     Active Substance: TOLVAPTAN
     Indication: CARDIAC FAILURE
     Dosage: UNK
     Dates: start: 20180701
  26. NITRIC OXIDE. [Concomitant]
     Active Substance: NITRIC OXIDE
     Dosage: UNK
     Dates: end: 20180625
  27. UPTRAVI [Suspect]
     Active Substance: SELEXIPAG
     Dosage: 0.1 MG, BID
     Route: 048
     Dates: start: 20180711, end: 20180715
  28. UPTRAVI [Suspect]
     Active Substance: SELEXIPAG
     Dosage: 0.12 MG, BID
     Route: 048
     Dates: start: 20180716, end: 20180720
  29. FUROSEMIDE. [Concomitant]
     Active Substance: FUROSEMIDE
     Dosage: 15 MG, QD
     Dates: start: 20181217
  30. FUROSEMIDE. [Concomitant]
     Active Substance: FUROSEMIDE
     Dosage: UNK
     Dates: start: 20180604, end: 20180613
  31. EPOPROSTENOL ACT [Suspect]
     Active Substance: EPOPROSTENOL
     Indication: PULMONARY HYPERTENSION
     Dosage: 2 NG/KG, PER MIN
     Route: 042
     Dates: start: 20180523, end: 20180524
  32. UPTRAVI [Suspect]
     Active Substance: SELEXIPAG
     Dosage: 0.06 MG, BID
     Route: 048
     Dates: start: 20180701, end: 20180705
  33. UPTRAVI [Suspect]
     Active Substance: SELEXIPAG
     Dosage: 0.2 MG, BID
     Route: 048
     Dates: start: 20180919
  34. REVATIO [Suspect]
     Active Substance: SILDENAFIL CITRATE
     Dosage: 11.2 MG, QD
     Route: 048
     Dates: start: 20180808, end: 20180813
  35. FUROSEMIDE. [Concomitant]
     Active Substance: FUROSEMIDE
     Dosage: 3 MG, QD
     Dates: start: 20180704, end: 20180706
  36. ALDACTONE A [Concomitant]
     Active Substance: SPIRONOLACTONE
     Dosage: 15 MG, QD
     Dates: start: 20181217
  37. OXYGEN. [Concomitant]
     Active Substance: OXYGEN
  38. EPOPROSTENOL ACT [Suspect]
     Active Substance: EPOPROSTENOL
     Dosage: 46 NG/KG, PER MIN
     Route: 042
     Dates: start: 20180627, end: 20180628
  39. FUROSEMIDE. [Concomitant]
     Active Substance: FUROSEMIDE
     Indication: CARDIAC FAILURE
     Dosage: 15 MG, QD
     Dates: start: 20180701, end: 20180802
  40. ALDACTONE A [Concomitant]
     Active Substance: SPIRONOLACTONE
     Dosage: 21 MG, QD
     Dates: start: 20181005, end: 20181018
  41. ALDACTONE A [Concomitant]
     Active Substance: SPIRONOLACTONE
     Dosage: 18 MG, QD
     Dates: start: 20181019, end: 20181216

REACTIONS (14)
  - Anaemia [Recovering/Resolving]
  - Pulmonary congestion [Recovering/Resolving]
  - Thoracic cavity drainage [Unknown]
  - Dyspnoea [Recovering/Resolving]
  - Respiratory failure [Recovering/Resolving]
  - Pyrexia [Recovering/Resolving]
  - Transfusion [Unknown]
  - Blood pressure decreased [Recovering/Resolving]
  - Condition aggravated [Recovering/Resolving]
  - White blood cell count increased [Recovered/Resolved]
  - Oxygen saturation decreased [Recovering/Resolving]
  - Device related infection [Recovered/Resolved]
  - Platelet count decreased [Recovering/Resolving]
  - Pleural effusion [Recovering/Resolving]

NARRATIVE: CASE EVENT DATE: 20180524
